FAERS Safety Report 18626456 (Version 1)
Quarter: 2020Q4

REPORT INFORMATION
  Report Type: Report from Study
  Country: CA (occurrence: CA)
  Receive Date: 20201217
  Receipt Date: 20201217
  Transmission Date: 20210114
  Serious: Yes (Hospitalization)
  Sender: FDA-Public Use
  Company Number: CA-JNJFOC-20201223427

PATIENT
  Age: 47 Year
  Sex: Female

DRUGS (1)
  1. REMICADE [Suspect]
     Active Substance: INFLIXIMAB
     Indication: CROHN^S DISEASE
     Dosage: LAST REMICADE INFUSION ON 27-NOV-2020
     Route: 042

REACTIONS (3)
  - Salpingectomy [Unknown]
  - Oophorectomy [Unknown]
  - Abdominal mass [Unknown]

NARRATIVE: CASE EVENT DATE: 2020
